FAERS Safety Report 25553086 (Version 1)
Quarter: 2025Q3

REPORT INFORMATION
  Report Type: Spontaneous
  Country: US (occurrence: US)
  Receive Date: 20250715
  Receipt Date: 20250715
  Transmission Date: 20251020
  Serious: No
  Sender: RECKITT BENCKISER
  Company Number: US-PROD-AS2-212756134-20-24-USA-RB-0014454

PATIENT
  Sex: Male
  Weight: 87.09 kg

DRUGS (3)
  1. MUCINEX D [Suspect]
     Active Substance: GUAIFENESIN\PSEUDOEPHEDRINE HYDROCHLORIDE
     Indication: Product used for unknown indication
     Dosage: TOOK 3 TABLETS IN TOTAL
     Route: 048
     Dates: start: 20241103, end: 20241104
  2. MUCINEX [Suspect]
     Active Substance: GUAIFENESIN
     Indication: Product used for unknown indication
     Dosage: TOOK 5  TABLET IN TOTAL
     Route: 048
     Dates: start: 20241031, end: 20241102
  3. CEFDINIR [Concomitant]
     Active Substance: CEFDINIR
     Indication: Pneumonia
     Route: 065

REACTIONS (3)
  - Prostatomegaly [Not Recovered/Not Resolved]
  - Expired product administered [Not Recovered/Not Resolved]
  - Pollakiuria [Recovering/Resolving]
